APPROVED DRUG PRODUCT: DIAZEPAM
Active Ingredient: DIAZEPAM
Strength: 2MG
Dosage Form/Route: TABLET;ORAL
Application: A077749 | Product #001
Applicant: STRIDES PHARMA INTERNATIONAL AG
Approved: Mar 31, 2006 | RLD: No | RS: No | Type: DISCN